FAERS Safety Report 14751974 (Version 2)
Quarter: 2024Q1

REPORT INFORMATION
  Report Type: Spontaneous
  Country: ES (occurrence: ES)
  Receive Date: 20180412
  Receipt Date: 20240212
  Transmission Date: 20240410
  Serious: Yes (Hospitalization, Other)
  Sender: FDA-Public Use
  Company Number: ES-AUROBINDO-AUR-APL-2018-019122

PATIENT
  Age: 78 Year
  Sex: Female

DRUGS (4)
  1. AMIODARONE [Suspect]
     Active Substance: AMIODARONE
     Indication: Atrial fibrillation
     Dosage: 100 MILLIGRAM, ONCE A DAY
     Route: 048
     Dates: start: 2011, end: 20161011
  2. EVEROLIMUS [Suspect]
     Active Substance: EVEROLIMUS
     Indication: Renal transplant
     Dosage: 2.5 MILLIGRAM, ONCE A DAY
     Route: 048
     Dates: start: 20150507, end: 20161011
  3. MYCOPHENOLATE MOFETIL [Concomitant]
     Active Substance: MYCOPHENOLATE MOFETIL
     Indication: Renal transplant
     Dosage: 500 MILLIGRAM, ONCE A DAY
     Route: 048
     Dates: start: 201409
  4. HYDRALAZINE [Concomitant]
     Active Substance: HYDRALAZINE HYDROCHLORIDE
     Indication: Hypertension
     Dosage: 75 MILLIGRAM, ONCE A DAY
     Route: 048
     Dates: start: 201504, end: 20161004

REACTIONS (1)
  - Idiopathic pneumonia syndrome [Not Recovered/Not Resolved]

NARRATIVE: CASE EVENT DATE: 20160901
